FAERS Safety Report 7726013-X (Version None)
Quarter: 2011Q3

REPORT INFORMATION
  Report Type: 
  Country: None (occurrence: None)
  Receive Date: 20110902
  Receipt Date: 20110829
  Transmission Date: 20111222
  Serious: Yes (Death, Hospitalization)
  Sender: FDA-Public Use
  Company Number: BR-ROCHE-790821

PATIENT
  Sex: Female
  Weight: 65 kg

DRUGS (6)
  1. ALLEGRA [Concomitant]
     Route: 048
     Dates: start: 20110516, end: 20110717
  2. PANTOPRAZOLE [Concomitant]
     Indication: GASTRITIS
     Route: 048
     Dates: start: 20110628, end: 20110717
  3. ACETAMINOPHEN [Concomitant]
     Dosage: WHEN NEEDED
     Route: 048
     Dates: start: 20110708, end: 20110717
  4. RIBAVIRIN [Suspect]
     Indication: HEPATITIS C
     Route: 048
     Dates: start: 20110425
  5. RIBAVIRIN [Suspect]
     Route: 048
     Dates: start: 20110714, end: 20110717
  6. PEGINTERFERON ALFA-2A [Suspect]
     Indication: HEPATITIS C
     Route: 058
     Dates: start: 20110425, end: 20110711

REACTIONS (2)
  - SEPTIC SHOCK [None]
  - HEPATIC FAILURE [None]
